FAERS Safety Report 25528766 (Version 1)
Quarter: 2025Q3

REPORT INFORMATION
  Report Type: Spontaneous
  Country: JP (occurrence: None)
  Receive Date: 20250708
  Receipt Date: 20250708
  Transmission Date: 20251021
  Serious: Yes (Life-Threatening)
  Sender: ORION
  Company Number: JP-Orion Corporation ORION PHARMA-ENTC2025-0087

PATIENT
  Age: 75 Year
  Sex: Female

DRUGS (2)
  1. STALEVO [Suspect]
     Active Substance: CARBIDOPA\ENTACAPONE\LEVODOPA
     Indication: Parkinson^s disease
     Dates: start: 20250519, end: 20250528
  2. DROXIDOPA [Concomitant]
     Active Substance: DROXIDOPA

REACTIONS (4)
  - Peripheral coldness [Recovered/Resolved]
  - Pallor [Recovered/Resolved]
  - Hypertension [Recovered/Resolved]
  - Cyanosis [Recovered/Resolved]

NARRATIVE: CASE EVENT DATE: 20250520
